FAERS Safety Report 15231032 (Version 1)
Quarter: 2018Q3

REPORT INFORMATION
  Report Type: Spontaneous
  Country: US (occurrence: US)
  Receive Date: 20180802
  Receipt Date: 20180802
  Transmission Date: 20181010
  Serious: Yes (Other)
  Sender: FDA-Public Use
  Company Number: US-ACCORD-064219

PATIENT
  Age: 48 Year
  Sex: Female

DRUGS (9)
  1. PARAPLATIN [Suspect]
     Active Substance: CARBOPLATIN
     Indication: BREAST CANCER STAGE II
  2. HERCEPTIN [Suspect]
     Active Substance: TRASTUZUMAB
     Indication: BREAST CANCER STAGE II
  3. ARIMIDEX [Concomitant]
     Active Substance: ANASTROZOLE
     Dosage: STRENGTH: 1 MG?1 QD
     Route: 048
     Dates: start: 20121029
  4. CALCET [Concomitant]
     Dosage: STRENGTH: 500 MG ? 400 INTL UNITS?2 QD
     Route: 048
     Dates: start: 20121029
  5. ZOFRAN [Concomitant]
     Active Substance: ONDANSETRON HYDROCHLORIDE
     Dosage: STRENGTH: 4 MG
     Route: 048
     Dates: start: 20120916
  6. METOPROLOL. [Concomitant]
     Active Substance: METOPROLOL
     Dosage: STRENGTH: 25 MG?1 BID
     Route: 048
     Dates: start: 20120916
  7. DOCETAXEL ACCORD [Suspect]
     Active Substance: DOCETAXEL
     Indication: BREAST CANCER STAGE II
     Dates: start: 20120309, end: 20120605
  8. SENOKOT [Concomitant]
     Active Substance: SENNOSIDES
     Dosage: STRENGTH: 8.6 MG?1 BID
     Route: 048
     Dates: start: 20120916
  9. ZITHROMAX [Concomitant]
     Active Substance: AZITHROMYCIN DIHYDRATE
     Dosage: STRENGTH: 250 MG?1 QD
     Route: 048
     Dates: start: 20121126

REACTIONS (1)
  - Alopecia [Not Recovered/Not Resolved]

NARRATIVE: CASE EVENT DATE: 20121201
